FAERS Safety Report 9628536 (Version 1)
Quarter: 2013Q4

REPORT INFORMATION
  Report Type: Spontaneous
  Country: AU (occurrence: AU)
  Receive Date: 20131017
  Receipt Date: 20131017
  Transmission Date: 20140711
  Serious: Yes (Other)
  Sender: FDA-Public Use
  Company Number: AU-GE HEALTHCARE MEDICAL DIAGNOSTICS-OMPQ-PR-1310S-1219

PATIENT
  Age: 40 Year
  Sex: Male
  Weight: 94 kg

DRUGS (7)
  1. OMNIPAQUE [Suspect]
     Indication: CHEST PAIN
     Route: 013
     Dates: start: 20131008, end: 20131008
  2. OMNIPAQUE [Suspect]
     Indication: DIAGNOSTIC PROCEDURE
  3. MIDAZOLAM [Concomitant]
     Route: 042
  4. HEPARIN [Concomitant]
     Route: 042
  5. VERAPAMIL [Concomitant]
     Route: 013
  6. GTN [Concomitant]
     Route: 013
  7. LIGNOCAIN 2% [Concomitant]
     Route: 058

REACTIONS (3)
  - Eye swelling [Recovering/Resolving]
  - Ocular hyperaemia [Recovering/Resolving]
  - Urticaria [Recovering/Resolving]
